FAERS Safety Report 24787865 (Version 1)
Quarter: 2024Q4

REPORT INFORMATION
  Report Type: Spontaneous
  Country: CZ (occurrence: CZ)
  Receive Date: 20241230
  Receipt Date: 20241230
  Transmission Date: 20250115
  Serious: Yes (Other)
  Sender: SANOFI AVENTIS
  Company Number: None

PATIENT
  Age: 51 Year
  Sex: Female

DRUGS (3)
  1. DUPIXENT [Suspect]
     Active Substance: DUPILUMAB
     Indication: Dermatitis atopic
     Dosage: 600 MG, 1X; THE FIRST DOSE, WEEK 0
     Route: 058
     Dates: start: 20210701, end: 20210701
  2. DUPIXENT [Suspect]
     Active Substance: DUPILUMAB
     Dosage: 300 MG, QOW
     Route: 058
     Dates: start: 202107
  3. Ylpio [Concomitant]
     Dosage: UNK

REACTIONS (5)
  - Erysipelas [Recovered/Resolved]
  - Asthma [Unknown]
  - Hypoxia [Unknown]
  - Bronchitis [Unknown]
  - Hypoventilation [Unknown]

NARRATIVE: CASE EVENT DATE: 20240601
